FAERS Safety Report 8964757 (Version 2)
Quarter: 2015Q2

REPORT INFORMATION
  Report Type: Report from Study
  Country: FR (occurrence: FR)
  Receive Date: 20121213
  Receipt Date: 20150402
  Transmission Date: 20150821
  Serious: Yes (Death, Hospitalization)
  Sender: FDA-Public Use
  Company Number: FR-ROCHE-1164182

PATIENT
  Age: 85 Year
  Sex: Female

DRUGS (3)
  1. RITUXIMAB [Suspect]
     Active Substance: RITUXIMAB
     Route: 041
     Dates: start: 20061222
  2. CORTANCYL [Concomitant]
     Active Substance: PREDNISONE
     Route: 065
  3. RITUXIMAB [Suspect]
     Active Substance: RITUXIMAB
     Indication: RHEUMATOID ARTHRITIS
     Route: 041
     Dates: start: 20061208

REACTIONS (17)
  - Dyspnoea [Unknown]
  - Cardiac failure [Unknown]
  - Atrial fibrillation [Unknown]
  - Vascular cognitive impairment [Unknown]
  - Oedema peripheral [Unknown]
  - Arrhythmia [Unknown]
  - Death [Fatal]
  - Fall [Unknown]
  - Cholestasis [Not Recovered/Not Resolved]
  - Cardiac failure [Unknown]
  - Autonomic nervous system imbalance [Unknown]
  - Confusional state [Unknown]
  - Somatoform disorder [Unknown]
  - Malaise [Unknown]
  - Vitreous floaters [Unknown]
  - Disorientation [Unknown]
  - Injury [Unknown]

NARRATIVE: CASE EVENT DATE: 200704
